FAERS Safety Report 12014319 (Version 3)
Quarter: 2018Q2

REPORT INFORMATION
  Report Type: Spontaneous
  Country: US (occurrence: US)
  Receive Date: 20160205
  Receipt Date: 20180421
  Transmission Date: 20180711
  Serious: No
  Sender: FDA-Public Use
  Company Number: ALCN2016US000977

PATIENT
  Sex: Female

DRUGS (2)
  1. TRAVATAN Z [Suspect]
     Active Substance: TRAVOPROST
     Indication: GLAUCOMA
     Dosage: 1 GTT, QHS
     Route: 047
     Dates: start: 20160126
  2. GENTEAL MILD TO MODERATE [Suspect]
     Active Substance: HYPROMELLOSE 2910 (4000 MPA.S)
     Indication: DRY EYE
     Dosage: 1 GTT, ONCE/SINGLE
     Route: 047
     Dates: start: 20160126, end: 20160126

REACTIONS (2)
  - Eye pain [Recovered/Resolved]
  - Photophobia [Recovered/Resolved]

NARRATIVE: CASE EVENT DATE: 20160126
